FAERS Safety Report 21554095 (Version 1)
Quarter: 2022Q4

REPORT INFORMATION
  Report Type: Spontaneous
  Country: FR (occurrence: FR)
  Receive Date: 20221104
  Receipt Date: 20221104
  Transmission Date: 20230112
  Serious: Yes (Hospitalization, Other)
  Sender: FDA-Public Use
  Company Number: None

PATIENT
  Age: 88 Year
  Sex: Female

DRUGS (10)
  1. ALTEPLASE [Suspect]
     Active Substance: ALTEPLASE
     Indication: Ischaemic stroke
     Dosage: 7MG BOLUS + 56 MG OVER 1 HOUR POWDER AND SOLVENT FOR SOLUTION FOR INJECTION AND INFUSION, MOST RECEN
     Route: 042
     Dates: start: 20221004
  2. FLUINDIONE [Suspect]
     Active Substance: FLUINDIONE
     Indication: Atrial fibrillation
     Dosage: 3/4 OF A TABLET EVERY DAY.?SCORED TABLET
     Route: 048
  3. AMLODIPINE [Concomitant]
     Active Substance: AMLODIPINE BESYLATE
     Indication: Hypertension
     Route: 048
  4. BISOPROLOL FUMARATE [Concomitant]
     Active Substance: BISOPROLOL FUMARATE
     Indication: Hypertension
     Dosage: SCORED FILM-COATED TABLET
     Route: 048
  5. VENLAFAXINE [Concomitant]
     Active Substance: VENLAFAXINE HYDROCHLORIDE
     Indication: Depression
     Route: 048
  6. ZOPICLONE [Concomitant]
     Active Substance: ZOPICLONE
     Indication: Insomnia
     Route: 048
  7. ZOCOR [Concomitant]
     Active Substance: SIMVASTATIN
     Indication: Dyslipidaemia
     Route: 048
  8. BUMETANIDE [Concomitant]
     Active Substance: BUMETANIDE
     Indication: Hypertension
     Route: 048
  9. ESOMEPRAZOLE [Concomitant]
     Active Substance: ESOMEPRAZOLE
     Indication: Prophylaxis against gastrointestinal ulcer
     Route: 048
  10. POTASSIUM CHLORIDE [Concomitant]
     Active Substance: POTASSIUM CHLORIDE
     Indication: Hypokalaemia
     Route: 048

REACTIONS (4)
  - Haemorrhagic transformation stroke [Recovering/Resolving]
  - Subcutaneous haematoma [Recovering/Resolving]
  - Anaemia [Recovering/Resolving]
  - Drug interaction [Unknown]

NARRATIVE: CASE EVENT DATE: 20221005
